FAERS Safety Report 12720994 (Version 1)
Quarter: 2016Q3

REPORT INFORMATION
  Report Type: Spontaneous
  Country: US (occurrence: US)
  Receive Date: 20160907
  Receipt Date: 20160907
  Transmission Date: 20161109
  Serious: No
  Sender: FDA-Public Use
  Company Number: US-WATSON-2016-16056

PATIENT
  Age: 63 Year
  Sex: Female

DRUGS (2)
  1. CALCIUM [Concomitant]
     Active Substance: CALCIUM
     Indication: PRODUCT USED FOR UNKNOWN INDICATION
     Dosage: UNK, UNKNOWN
     Route: 065
  2. ALENDRONATE SODIUM (WATSON LABORATORIES) [Suspect]
     Active Substance: ALENDRONATE SODIUM
     Indication: OSTEOPOROSIS
     Dosage: 70 MG, 1/WEEK
     Route: 048
     Dates: start: 20160710, end: 20160710

REACTIONS (4)
  - Dizziness [Not Recovered/Not Resolved]
  - Flushing [Not Recovered/Not Resolved]
  - Nausea [Not Recovered/Not Resolved]
  - Pain in jaw [Not Recovered/Not Resolved]

NARRATIVE: CASE EVENT DATE: 20160711
